FAERS Safety Report 8176740-8 (Version None)
Quarter: 2012Q1

REPORT INFORMATION
  Report Type: 
  Country: None (occurrence: None)
  Receive Date: 20120123
  Receipt Date: 20111007
  Transmission Date: 20120608
  Serious: Yes (Hospitalization)
  Sender: FDA-Public Use
  Company Number: 2011AL000081

PATIENT
  Age: 55 Year
  Sex: Female
  Weight: 61.2356 kg

DRUGS (18)
  1. LORATADINE [Concomitant]
  2. FENTANYL [Concomitant]
  3. CARBOPLATIN [Suspect]
     Indication: OVARIAN CANCER
     Dosage: 428 MG;QM;IV
     Route: 042
     Dates: start: 20110914, end: 20111001
  4. DEXAMETHASONE [Concomitant]
  5. DOCUSATE SODIUM [Concomitant]
  6. FOLIC ACID [Concomitant]
  7. PROCHLORPERAZINE [Concomitant]
  8. LACTULOSE [Concomitant]
  9. ONDANSETRON [Concomitant]
  10. MOTRIN [Concomitant]
  11. OXYCODONE HCL [Concomitant]
  12. BUPROPION HCL [Concomitant]
  13. SERTRALINE HYDROCHLORIDE [Concomitant]
  14. FOLOTYN [Suspect]
     Indication: OVARIAN CANCER
     Dosage: 60 MG/M**2;QOW;IV
     Route: 042
     Dates: start: 20110914, end: 20111001
  15. CIPROFLOXACIN [Concomitant]
  16. LORAZEPAM [Concomitant]
  17. METHYLPREDNISOLONE [Concomitant]
  18. XANAX [Concomitant]

REACTIONS (3)
  - FEBRILE NEUTROPENIA [None]
  - MUCOSAL INFLAMMATION [None]
  - THROMBOCYTOPENIA [None]
